FAERS Safety Report 20581515 (Version 3)
Quarter: 2022Q2

REPORT INFORMATION
  Report Type: Spontaneous
  Country: US (occurrence: US)
  Receive Date: 20220311
  Receipt Date: 20220520
  Transmission Date: 20220721
  Serious: Yes (Other)
  Sender: FDA-Public Use
  Company Number: US-CHIESI-2022CHF01069

PATIENT
  Age: 26 Year
  Sex: Male
  Weight: 77 kg

DRUGS (4)
  1. FERRIPROX [Suspect]
     Active Substance: DEFERIPRONE
     Indication: Haemochromatosis
     Dosage: 4000 MILLIGRAM, BID
     Route: 048
     Dates: start: 20201212
  2. FERRIPROX [Suspect]
     Active Substance: DEFERIPRONE
     Indication: Transfusion
     Dosage: UNK
     Route: 048
     Dates: start: 20191122
  3. FERRIPROX [Suspect]
     Active Substance: DEFERIPRONE
     Indication: Thalassaemia
     Dosage: UNK
     Route: 048
     Dates: start: 20150711
  4. JADENU [Concomitant]
     Active Substance: DEFERASIROX
     Indication: Product used for unknown indication
     Dosage: UNK

REACTIONS (4)
  - Nephrolithiasis [Recovering/Resolving]
  - Overdose [Recovered/Resolved]
  - Nasopharyngitis [Recovered/Resolved]
  - Off label use [Recovered/Resolved]

NARRATIVE: CASE EVENT DATE: 20201212
